FAERS Safety Report 25806121 (Version 4)
Quarter: 2025Q4

REPORT INFORMATION
  Report Type: Report from Study
  Country: US (occurrence: US)
  Receive Date: 20250916
  Receipt Date: 20251218
  Transmission Date: 20260117
  Serious: No
  Sender: ACADIA PHARMACEUTICALS
  Company Number: US-ACADIA PHARMACEUTICALS INC.-ACA-2025-TRF-010184

PATIENT
  Sex: Female
  Weight: 13 kg

DRUGS (1)
  1. DAYBUE [Suspect]
     Active Substance: TROFINETIDE
     Indication: Rett syndrome
     Dosage: 25 MILLILITER, BID
     Route: 048
     Dates: start: 20240122

REACTIONS (5)
  - Ear infection [Not Recovered/Not Resolved]
  - Upper-airway cough syndrome [Unknown]
  - Vomiting [Unknown]
  - Illness [Unknown]
  - Product dose omission issue [Unknown]
